FAERS Safety Report 4464721-7 (Version None)
Quarter: 2004Q3

REPORT INFORMATION
  Report Type: 
  Country: None (occurrence: None)
  Receive Date: 20040929
  Receipt Date: 20040929
  Transmission Date: 20050211
  Serious: Yes (Hospitalization)
  Sender: FDA-Public Use
  Company Number: None

PATIENT
  Sex: Male

DRUGS (12)
  1. TACROLIMUS  1 MG [Suspect]
     Indication: TRANSPLANT
     Dosage: 2 MG BID ORAL
     Route: 048
  2. ASPIRIN [Concomitant]
  3. ATENOLOL [Concomitant]
  4. CLONIDINE HCL [Concomitant]
  5. HYDROCHLOROTHIAZIDE/TRIAMTERENE [Concomitant]
  6. LORAZEPAM [Concomitant]
  7. PREDNISONE [Concomitant]
  8. RANITIDINE [Concomitant]
  9. SILDENAFIL [Concomitant]
  10. CO-TRIMOXAZOLE [Concomitant]
  11. URSODIOL [Concomitant]
  12. VALGANCYCLOVIR [Concomitant]

REACTIONS (3)
  - DEHYDRATION [None]
  - DRUG TOXICITY [None]
  - RENAL FAILURE [None]
